FAERS Safety Report 5293059-3 (Version None)
Quarter: 2007Q2

REPORT INFORMATION
  Report Type: 
  Country: None (occurrence: None)
  Receive Date: 20070411
  Receipt Date: 20070331
  Transmission Date: 20071010
  Serious: Yes (Other)
  Sender: FDA-Public Use
  Company Number: PHEH2007US03839

PATIENT
  Age: 56 Year
  Sex: Male

DRUGS (1)
  1. LAMISIL [Suspect]
     Dates: start: 20070122

REACTIONS (1)
  - BLOOD CREATININE INCREASED [None]
